FAERS Safety Report 10612291 (Version 1)
Quarter: 2014Q4

REPORT INFORMATION
  Report Type: Spontaneous
  Country: FR (occurrence: FR)
  Receive Date: 20141127
  Receipt Date: 20141127
  Transmission Date: 20150529
  Serious: Yes (Life-Threatening)
  Sender: FDA-Public Use
  Company Number: FR-BRISTOL-MYERS SQUIBB COMPANY-21610639

PATIENT
  Age: 65 Year
  Sex: Male

DRUGS (16)
  1. ORENCIA [Suspect]
     Active Substance: ABATACEPT
     Indication: RHEUMATOID ARTHRITIS
     Route: 042
     Dates: start: 20140519, end: 20140919
  2. CORTANCYL [Concomitant]
     Active Substance: PREDNISONE
  3. TOPALGIC LP [Concomitant]
     Active Substance: TRAMADOL
  4. CETIRIZINE [Concomitant]
     Active Substance: CETIRIZINE HYDROCHLORIDE
  5. LERCAN [Concomitant]
     Active Substance: LERCANIDIPINE
  6. DOLIPRANE [Concomitant]
     Active Substance: ACETAMINOPHEN
  7. NOCTAMIDE [Concomitant]
     Active Substance: LORMETAZEPAM
  8. PANTOPRAZOLE SODIUM [Concomitant]
     Active Substance: PANTOPRAZOLE SODIUM
  9. SPECIAFOLDINE [Concomitant]
     Active Substance: FOLIC ACID
  10. COAPROVEL [Concomitant]
     Active Substance: HYDROCHLOROTHIAZIDE\IRBESARTAN
  11. METOJECT [Suspect]
     Active Substance: METHOTREXATE SODIUM
     Indication: RHEUMATOID ARTHRITIS
     Route: 058
     Dates: start: 2005, end: 201410
  12. NOVONORM [Concomitant]
     Active Substance: REPAGLINIDE
  13. INIPOMP [Concomitant]
     Active Substance: PANTOPRAZOLE SODIUM
  14. ZOCOR [Concomitant]
     Active Substance: SIMVASTATIN
  15. LYRICA [Concomitant]
     Active Substance: PREGABALIN
  16. PREVISCAN [Concomitant]
     Active Substance: FLUINDIONE

REACTIONS (2)
  - Histiocytosis haematophagic [Not Recovered/Not Resolved]
  - B-cell lymphoma [Not Recovered/Not Resolved]

NARRATIVE: CASE EVENT DATE: 201410
